FAERS Safety Report 7366807-6 (Version None)
Quarter: 2011Q1

REPORT INFORMATION
  Report Type: 
  Country: None (occurrence: None)
  Receive Date: 20110310
  Receipt Date: 20110228
  Transmission Date: 20110831
  Serious: Yes (Other)
  Sender: FDA-Public Use
  Company Number: 022915

PATIENT
  Sex: Female
  Weight: 78 kg

DRUGS (8)
  1. CODIOVAN [Concomitant]
  2. KEPPRA [Suspect]
     Indication: EPILEPSY
     Dosage: SEE IMAGE
     Route: 048
     Dates: start: 20100911, end: 20101113
  3. KEPPRA [Suspect]
     Indication: RASH
     Dosage: SEE IMAGE
     Route: 048
     Dates: start: 20100911, end: 20101113
  4. KEPPRA [Suspect]
     Indication: EPILEPSY
     Dosage: SEE IMAGE
     Route: 048
     Dates: start: 20101114
  5. KEPPRA [Suspect]
     Indication: RASH
     Dosage: SEE IMAGE
     Route: 048
     Dates: start: 20101114
  6. KEPPRA [Suspect]
     Indication: EPILEPSY
     Dosage: SEE IMAGE
     Route: 048
     Dates: start: 20061001, end: 20100911
  7. KEPPRA [Suspect]
     Indication: RASH
     Dosage: SEE IMAGE
     Route: 048
     Dates: start: 20061001, end: 20100911
  8. LEVOTHYROXINE SODIUM [Concomitant]

REACTIONS (8)
  - RASH [None]
  - PSORIASIS [None]
  - PAIN [None]
  - DYSPHONIA [None]
  - ECZEMA [None]
  - DRUG INTOLERANCE [None]
  - SWELLING [None]
  - SKIN NECROSIS [None]
